FAERS Safety Report 6262176-3 (Version None)
Quarter: 2009Q3

REPORT INFORMATION
  Report Type: 
  Country: None (occurrence: None)
  Receive Date: 20090709
  Receipt Date: 20090701
  Transmission Date: 20100115
  Serious: Yes (Hospitalization)
  Sender: FDA-Public Use
  Company Number: JP-MERCK-0906USA01329

PATIENT
  Age: 63 Year
  Sex: Male

DRUGS (4)
  1. ZETIA [Suspect]
     Indication: HYPERCHOLESTEROLAEMIA
     Route: 048
     Dates: start: 20090326, end: 20090528
  2. CELIPROLOL HYDROCHLORIDE [Concomitant]
     Route: 065
     Dates: start: 20050929
  3. OLMESARTAN MEDOXOMIL [Concomitant]
     Route: 065
     Dates: start: 20060413
  4. PITAVASTATIN CALCIUM [Concomitant]
     Route: 065
     Dates: start: 20070308

REACTIONS (2)
  - INTERSTITIAL LUNG DISEASE [None]
  - POLYMYOSITIS [None]
